FAERS Safety Report 21802733 (Version 1)
Quarter: 2022Q4

REPORT INFORMATION
  Report Type: Spontaneous
  Country: FR (occurrence: FR)
  Receive Date: 20221231
  Receipt Date: 20221231
  Transmission Date: 20230113
  Serious: Yes (Other)
  Sender: FDA-Public Use
  Company Number: None

PATIENT
  Age: 83 Year
  Sex: Female
  Weight: 85 kg

DRUGS (1)
  1. FUROSEMIDE [Suspect]
     Active Substance: FUROSEMIDE
     Indication: Cardiac failure
     Dosage: 80 MG/DAY FROM 14-JAN-2019 TO 16-JAN THEN 160 MG
     Dates: start: 20190114, end: 20190122

REACTIONS (2)
  - Hypernatraemia [Recovered/Resolved]
  - Acute kidney injury [Recovered/Resolved]

NARRATIVE: CASE EVENT DATE: 20190118
